FAERS Safety Report 12996838 (Version 2)
Quarter: 2017Q2

REPORT INFORMATION
  Report Type: Report from Study
  Country: None (occurrence: DE)
  Receive Date: 20161205
  Receipt Date: 20170511
  Transmission Date: 20170830
  Serious: Yes (Hospitalization)
  Sender: FDA-Public Use
  Company Number: DE-ABBVIE-16K-062-1795640-00

PATIENT
  Age: 20 Year
  Sex: Female

DRUGS (1)
  1. HUMIRA [Suspect]
     Active Substance: ADALIMUMAB
     Indication: COLITIS ULCERATIVE
     Route: 058
     Dates: start: 201604

REACTIONS (4)
  - Migraine [Not Recovered/Not Resolved]
  - Neuralgia [Recovering/Resolving]
  - Medical device site swelling [Recovering/Resolving]
  - Headache [Recovering/Resolving]

NARRATIVE: CASE EVENT DATE: 201611
